FAERS Safety Report 23059470 (Version 1)
Quarter: 2023Q4

REPORT INFORMATION
  Report Type: Spontaneous
  Country: US (occurrence: US)
  Receive Date: 20231012
  Receipt Date: 20231012
  Transmission Date: 20240110
  Serious: No
  Sender: FDA-Public Use
  Company Number: US-TARO PHARMACEUTICALS USA INC.-2022TAR01298

PATIENT

DRUGS (2)
  1. LORATADINE [Suspect]
     Active Substance: LORATADINE
     Indication: Rhinorrhoea
     Dosage: 5 ML, OD, ONCE A DAY AS NEEDED
     Route: 048
     Dates: start: 20220806, end: 202210
  2. LORATADINE [Suspect]
     Active Substance: LORATADINE
     Indication: Cough

REACTIONS (2)
  - Abdominal pain upper [Recovered/Resolved]
  - Expired product administered [Unknown]
